FAERS Safety Report 8083360-2 (Version None)
Quarter: 2012Q1

REPORT INFORMATION
  Report Type: 
  Country: None (occurrence: None)
  Receive Date: 20120127
  Receipt Date: 20110113
  Transmission Date: 20120608
  Serious: No
  Sender: FDA-Public Use
  Company Number: US-ABBOTT-11P-163-0697831-00

PATIENT
  Sex: Female

DRUGS (3)
  1. ACETAMINOPHEN [Concomitant]
     Indication: PRODUCT USED FOR UNKNOWN INDICATION
  2. HUMIRA [Suspect]
     Indication: RHEUMATOID ARTHRITIS
     Dates: start: 20100407, end: 20101022
  3. METHOTREXATE [Concomitant]
     Indication: RHEUMATOID ARTHRITIS

REACTIONS (5)
  - INJECTION SITE ERYTHEMA [None]
  - INJECTION SITE SCAR [None]
  - DRUG EFFECT DECREASED [None]
  - INJECTION SITE SWELLING [None]
  - INJECTION SITE PRURITUS [None]
